FAERS Safety Report 9514911 (Version 1)
Quarter: 2013Q3

REPORT INFORMATION
  Report Type: Spontaneous
  Country: BR (occurrence: BR)
  Receive Date: 20130911
  Receipt Date: 20130911
  Transmission Date: 20140515
  Serious: Yes (Hospitalization)
  Sender: FDA-Public Use
  Company Number: BR-AMGEN-BRASP2013063036

PATIENT
  Sex: 0

DRUGS (5)
  1. ENBREL [Suspect]
     Indication: PRODUCT USED FOR UNKNOWN INDICATION
     Dosage: 25 MG, 2X/WEEK
     Route: 064
     Dates: start: 201003, end: 201302
  2. PREDNISONE [Concomitant]
     Indication: RHEUMATOID ARTHRITIS
     Dosage: STRENGTH 10MG
     Route: 064
  3. METHOTREXATE [Concomitant]
     Indication: RHEUMATOID ARTHRITIS
     Dosage: STRENGTH 5MG
     Route: 064
  4. OMEPRAZOL                          /00661201/ [Concomitant]
     Indication: GASTRIC DISORDER
     Dosage: UNK
     Route: 064
  5. FOLIC ACID [Concomitant]
     Indication: GASTRIC DISORDER
     Dosage: UNK
     Route: 064

REACTIONS (2)
  - Maternal exposure during pregnancy [Unknown]
  - Premature baby [Unknown]
